FAERS Safety Report 9714562 (Version 2)
Quarter: 2014Q1

REPORT INFORMATION
  Report Type: Report from Study
  Country: CA (occurrence: CA)
  Receive Date: 20131126
  Receipt Date: 20140129
  Transmission Date: 20141002
  Serious: Yes (Other)
  Sender: FDA-Public Use
  Company Number: CA-ABBVIE-13P-028-1171786-00

PATIENT
  Age: 39 Year
  Sex: Female
  Weight: 52.66 kg

DRUGS (1)
  1. HUMIRA [Suspect]
     Indication: CROHN^S DISEASE
     Route: 058
     Dates: start: 20130520, end: 20131104

REACTIONS (3)
  - Systemic lupus erythematosus [Recovering/Resolving]
  - Infection [Unknown]
  - Arthralgia [Recovering/Resolving]
